FAERS Safety Report 6432898-X (Version None)
Quarter: 2009Q4

REPORT INFORMATION
  Report Type: 
  Country: None (occurrence: None)
  Receive Date: 20091109
  Receipt Date: 20091105
  Transmission Date: 20100525
  Serious: Yes (Disabling)
  Sender: FDA-Public Use
  Company Number: DE-MERCK-0909DEU00036

PATIENT
  Age: 74 Year
  Sex: Male
  Weight: 94 kg

DRUGS (4)
  1. COSOPT [Suspect]
     Indication: OPEN ANGLE GLAUCOMA
     Route: 047
     Dates: start: 20090501
  2. COSOPT [Suspect]
     Indication: GLAUCOMA
     Route: 047
     Dates: start: 20090501
  3. BIMATOPROST [Suspect]
     Indication: OPEN ANGLE GLAUCOMA
     Route: 047
     Dates: start: 20090501
  4. BIMATOPROST [Suspect]
     Indication: GLAUCOMA
     Route: 047
     Dates: start: 20090501

REACTIONS (3)
  - GROWTH OF EYELASHES [None]
  - HETEROCHROMIA IRIDIS [None]
  - SEBORRHOEIC KERATOSIS [None]
